FAERS Safety Report 19766600 (Version 1)
Quarter: 2021Q3

REPORT INFORMATION
  Report Type: Spontaneous
  Country: US (occurrence: US)
  Receive Date: 20210831
  Receipt Date: 20210831
  Transmission Date: 20211014
  Serious: Yes (Other)
  Sender: FDA-Public Use
  Company Number: US-ORGANON-O2108USA002144

PATIENT
  Age: 41 Year
  Sex: Female

DRUGS (1)
  1. FOLLISTIM [Suspect]
     Active Substance: FOLLITROPIN
     Indication: OVARIAN FAILURE
     Dosage: 50 UNITS, DAILY ON 8 CYCLE DAY
     Route: 058
     Dates: start: 20201201

REACTIONS (1)
  - Abdominal distension [Unknown]

NARRATIVE: CASE EVENT DATE: 20210823
